FAERS Safety Report 23402795 (Version 1)
Quarter: 2024Q1

REPORT INFORMATION
  Report Type: Report from Study
  Country: US (occurrence: US)
  Receive Date: 20240115
  Receipt Date: 20240115
  Transmission Date: 20240410
  Serious: Yes (Other)
  Sender: FDA-Public Use
  Company Number: US-ABBVIE-5587924

PATIENT
  Sex: Male

DRUGS (1)
  1. CREON [Suspect]
     Active Substance: PANCRELIPASE AMYLASE\PANCRELIPASE LIPASE\PANCRELIPASE PROTEASE
     Indication: Product used for unknown indication
     Dosage: 6000 UNITS CAPSULE TAKE 3 CAP AT BREAKFAST TIME AND 3 CAP AT LUNCH TIME AND 3 CAP AT DINNER TIME
     Route: 048

REACTIONS (1)
  - Pancreatic carcinoma [Unknown]
